FAERS Safety Report 4761295-8 (Version None)
Quarter: 2005Q3

REPORT INFORMATION
  Report Type: 
  Country: None (occurrence: None)
  Receive Date: 20050901
  Receipt Date: 20050822
  Transmission Date: 20060218
  Serious: Yes (Hospitalization)
  Sender: FDA-Public Use
  Company Number: 200512634GDS

PATIENT
  Age: 79 Year
  Sex: Female

DRUGS (4)
  1. ASPIRIN [Suspect]
     Dosage: 100 MG, TOTAL DAILY, ORAL
     Route: 048
  2. BRUFEN (IBUPROFEN) [Suspect]
     Indication: OSTEOARTHRITIS
     Dosage: 400 MG, TOTAL DAILY, ORAL
     Route: 048
     Dates: start: 20050701, end: 20050720
  3. BETASERC [Concomitant]
  4. BLOPRESS [Concomitant]

REACTIONS (4)
  - CARDIAC FAILURE [None]
  - GASTRITIS EROSIVE [None]
  - HIATUS HERNIA [None]
  - IRON DEFICIENCY ANAEMIA [None]
